FAERS Safety Report 8332639-5 (Version None)
Quarter: 2012Q2

REPORT INFORMATION
  Report Type: 
  Country: None (occurrence: None)
  Receive Date: 20120503
  Receipt Date: 20120418
  Transmission Date: 20120825
  Serious: Yes (Hospitalization, Other)
  Sender: FDA-Public Use
  Company Number: CN-JNJFOC-20111009514

PATIENT
  Sex: Female
  Weight: 60 kg

DRUGS (3)
  1. RISPERDAL [Suspect]
     Dosage: 2 TABLETS AT NOON AND 4 TABLETS AT NIGHT
     Route: 048
     Dates: start: 20110926, end: 20111103
  2. REMERON [Concomitant]
     Indication: SCHIZOPHRENIA
     Route: 048
     Dates: start: 20060101
  3. RISPERDAL [Suspect]
     Indication: SCHIZOPHRENIA
     Dosage: 1 TABLET AT NOON AND 2 TABLETS AT NIGHT
     Route: 048
     Dates: start: 19981103, end: 20110925

REACTIONS (7)
  - SCHIZOPHRENIA [None]
  - DISTURBANCE IN ATTENTION [None]
  - HOSPITALISATION [None]
  - INTRAOCULAR PRESSURE INCREASED [None]
  - BODY DYSMORPHIC DISORDER [None]
  - URINARY TRACT INFECTION [None]
  - INCORRECT DOSE ADMINISTERED [None]
